FAERS Safety Report 9258261 (Version 1)
Quarter: 2013Q2

REPORT INFORMATION
  Report Type: Spontaneous
  Country: FR (occurrence: FR)
  Receive Date: 20130426
  Receipt Date: 20130426
  Transmission Date: 20140414
  Serious: Yes (Hospitalization)
  Sender: FDA-Public Use
  Company Number: FR-ELI_LILLY_AND_COMPANY-FR201304006218

PATIENT
  Age: 40 Year
  Sex: Female

DRUGS (7)
  1. ZYPREXA [Suspect]
     Dosage: 10 MG, QD
     Route: 048
  2. CLOZAPINE [Concomitant]
     Indication: PSYCHOTIC DISORDER
     Dosage: 200 MG, QD
     Dates: start: 20130122, end: 20130306
  3. FORLAX [Concomitant]
  4. LANSOYL [Concomitant]
  5. SEROPLEX [Concomitant]
  6. TEMESTA [Concomitant]
  7. TOPALGIC [Concomitant]

REACTIONS (1)
  - Colitis ischaemic [Recovering/Resolving]
